FAERS Safety Report 7282587-7 (Version None)
Quarter: 2011Q1

REPORT INFORMATION
  Report Type: 
  Country: None (occurrence: None)
  Receive Date: 20110209
  Receipt Date: 20110203
  Transmission Date: 20110831
  Serious: No
  Sender: FDA-Public Use
  Company Number: US-PFIZER INC-2011025441

PATIENT
  Sex: Female

DRUGS (1)
  1. PREMPRO [Suspect]
     Indication: MENOPAUSE
     Dosage: 0.625/2.5 MG, DAILY
     Route: 048
     Dates: start: 20110111, end: 20110126

REACTIONS (3)
  - MIGRAINE [None]
  - MALAISE [None]
  - NAUSEA [None]
